FAERS Safety Report 19200459 (Version 1)
Quarter: 2021Q2

REPORT INFORMATION
  Report Type: Spontaneous
  Country: IL (occurrence: IL)
  Receive Date: 20210430
  Receipt Date: 20210430
  Transmission Date: 20210717
  Serious: Yes (Death, Other)
  Sender: FDA-Public Use
  Company Number: IL-JNJFOC-20210447220

PATIENT
  Age: 73 Year
  Sex: Female

DRUGS (1)
  1. BALVERSA [Suspect]
     Active Substance: ERDAFITINIB
     Indication: PRODUCT USED FOR UNKNOWN INDICATION
     Route: 048
     Dates: start: 202004

REACTIONS (5)
  - Death [Fatal]
  - Confusional state [Unknown]
  - Hyperphosphataemia [Unknown]
  - Mucosal inflammation [Unknown]
  - Onycholysis [Unknown]
